FAERS Safety Report 8406750-4 (Version None)
Quarter: 2012Q2

REPORT INFORMATION
  Report Type: 
  Country: None (occurrence: None)
  Receive Date: 20120604
  Receipt Date: 20120524
  Transmission Date: 20120825
  Serious: Yes (Life-Threatening)
  Sender: FDA-Public Use
  Company Number: JP-SANOFI-AVENTIS-2012SA027434

PATIENT
  Age: 72 Year
  Sex: Male
  Weight: 55 kg

DRUGS (21)
  1. OXALIPLATIN [Suspect]
     Route: 041
     Dates: start: 20120112, end: 20120112
  2. OXALIPLATIN [Suspect]
     Route: 041
     Dates: start: 20111212, end: 20111212
  3. DEXAMETHASONE SODIUM PHOSPHATE [Concomitant]
     Dates: start: 20111027, end: 20120312
  4. OXALIPLATIN [Suspect]
     Route: 041
     Dates: start: 20111114, end: 20111114
  5. LEUCOVORIN CALCIUM [Suspect]
     Route: 041
     Dates: start: 20120206, end: 20120207
  6. ALOXI [Concomitant]
     Dates: start: 20111027, end: 20120312
  7. POLARAMINE [Concomitant]
     Dates: start: 20120312, end: 20120312
  8. OXALIPLATIN [Suspect]
     Route: 041
     Dates: start: 20120206, end: 20120206
  9. LEUCOVORIN CALCIUM [Suspect]
     Indication: COLON CANCER
     Route: 041
     Dates: start: 20111114, end: 20111115
  10. LEUCOVORIN CALCIUM [Suspect]
     Route: 041
     Dates: start: 20111212, end: 20111213
  11. OXALIPLATIN [Suspect]
     Indication: COLON CANCER
     Route: 041
     Dates: start: 20111027, end: 20111027
  12. LEUCOVORIN CALCIUM [Suspect]
     Route: 041
     Dates: start: 20120312, end: 20120312
  13. FLUOROURACIL [Concomitant]
     Dates: start: 20111027, end: 20120312
  14. FAMOTIDINE [Concomitant]
     Dates: start: 20120312, end: 20120312
  15. CANDESARTAN CILEXETIL [Concomitant]
  16. LEUCOVORIN CALCIUM [Suspect]
     Route: 041
     Dates: start: 20111027, end: 20111028
  17. SPIRONOLACTONE [Concomitant]
  18. LEUCOVORIN CALCIUM [Suspect]
     Route: 041
     Dates: start: 20120112, end: 20120113
  19. WARFARIN SODIUM [Concomitant]
  20. OXALIPLATIN [Suspect]
     Route: 041
     Dates: start: 20120312, end: 20120312
  21. METHYLPREDNISOLONE SODIUM SUCCINATE [Concomitant]
     Dates: start: 20120312, end: 20120312

REACTIONS (1)
  - ANAPHYLACTIC SHOCK [None]
